FAERS Safety Report 7717868-3 (Version None)
Quarter: 2011Q3

REPORT INFORMATION
  Report Type: 
  Country: None (occurrence: None)
  Receive Date: 20110830
  Receipt Date: 20110825
  Transmission Date: 20111222
  Serious: Yes (Other)
  Sender: FDA-Public Use
  Company Number: US-SANOFI-AVENTIS-2011SA055294

PATIENT
  Sex: Male

DRUGS (1)
  1. MULTAQ [Suspect]
     Route: 048

REACTIONS (5)
  - EXERCISE TOLERANCE DECREASED [None]
  - FATIGUE [None]
  - FEELING ABNORMAL [None]
  - DYSPNOEA EXERTIONAL [None]
  - SINUS ARRHYTHMIA [None]
